FAERS Safety Report 6608245-7 (Version None)
Quarter: 2010Q1

REPORT INFORMATION
  Report Type: 
  Country: None (occurrence: None)
  Receive Date: 20100301
  Receipt Date: 20100217
  Transmission Date: 20100710
  Serious: Yes (Hospitalization)
  Sender: FDA-Public Use
  Company Number: ES-ROCHE-686282

PATIENT
  Age: 44 Year
  Sex: Male

DRUGS (5)
  1. TAMIFLU [Suspect]
     Route: 048
     Dates: start: 20091027, end: 20091101
  2. PERFALGAN [Suspect]
     Dosage: STOP DATE: 2009
     Route: 042
     Dates: start: 20091027
  3. CLEXANE [Suspect]
     Indication: PROPHYLAXIS
     Dosage: DOSE: 40 UI DAILY
     Route: 058
     Dates: start: 20091027, end: 20091104
  4. TAVANIC [Suspect]
     Indication: PNEUMONIA
     Route: 042
     Dates: start: 20091027
  5. URBASON [Suspect]
     Indication: DRUG USE FOR UNKNOWN INDICATION
     Dosage: STOP DATE: 2009
     Route: 065
     Dates: start: 20091027

REACTIONS (1)
  - HYPERTRANSAMINASAEMIA [None]
